FAERS Safety Report 18479952 (Version 1)
Quarter: 2020Q4

REPORT INFORMATION
  Report Type: Spontaneous
  Country: ES (occurrence: ES)
  Receive Date: 20201109
  Receipt Date: 20201109
  Transmission Date: 20210114
  Serious: Yes (Life-Threatening, Hospitalization, Disabling)
  Sender: FDA-Public Use
  Company Number: ES-TEVA-2020-ES-1845340

PATIENT
  Age: 37 Year
  Sex: Female
  Weight: 57 kg

DRUGS (4)
  1. ANAFRANIL [Suspect]
     Active Substance: CLOMIPRAMINE HYDROCHLORIDE
     Indication: OBSESSIVE-COMPULSIVE DISORDER
     Route: 048
     Dates: start: 20200715, end: 20200721
  2. PREGABALINA 25MG [Suspect]
     Active Substance: PREGABALIN
     Indication: OBSESSIVE-COMPULSIVE DISORDER
     Dosage: 75 MILLIGRAM DAILY;
     Route: 048
     Dates: start: 20200715, end: 20200727
  3. OLANZAPINA 2,5 MG [Suspect]
     Active Substance: OLANZAPINE
     Indication: OBSESSIVE-COMPULSIVE DISORDER
     Dosage: 5 MILLIGRAM DAILY;
     Route: 048
     Dates: start: 20200715, end: 20200727
  4. QUETIAPINA ALTER 25 MG COMPRIMIDOS RECUBIERTOS CON PELICULA EFG , 60 C [Concomitant]
     Indication: OBSESSIVE-COMPULSIVE DISORDER
     Dosage: 75 MILLIGRAM DAILY;
     Dates: start: 20200701, end: 20200715

REACTIONS (1)
  - Syncope [Recovered/Resolved]

NARRATIVE: CASE EVENT DATE: 20200721
